FAERS Safety Report 9524322 (Version 1)
Quarter: 2013Q3

REPORT INFORMATION
  Report Type: Spontaneous
  Country: US (occurrence: None)
  Receive Date: 20130912
  Receipt Date: 20130912
  Transmission Date: 20140515
  Serious: No
  Sender: FDA-Public Use
  Company Number: None

PATIENT
  Age: 83 None
  Sex: Female
  Weight: 72.58 kg

DRUGS (6)
  1. XARELTO [Suspect]
     Indication: ANTICOAGULANT THERAPY
     Dosage: 20 MG 1 A DAY WITH EVERY MEAL
     Dates: start: 201211, end: 201308
  2. ASPIRIN [Concomitant]
  3. PROTONEX [Concomitant]
  4. FISH OIL [Concomitant]
  5. CALCIUM + D [Concomitant]
  6. VITAMIN [Concomitant]

REACTIONS (5)
  - Urticaria [None]
  - Fatigue [None]
  - Myalgia [None]
  - Anaemia [None]
  - Blood potassium abnormal [None]
